FAERS Safety Report 6808131-3 (Version None)
Quarter: 2010Q2

REPORT INFORMATION
  Report Type: 
  Country: None (occurrence: None)
  Receive Date: 20100629
  Receipt Date: 20090312
  Transmission Date: 20101027
  Serious: No
  Sender: FDA-Public Use
  Company Number: US-PFIZER INC-2009181857

PATIENT
  Sex: Male
  Weight: 81.6 kg

DRUGS (1)
  1. VIAGRA [Suspect]
     Indication: ERECTILE DYSFUNCTION
     Dosage: 25 MG, UNK
     Dates: start: 20080601

REACTIONS (1)
  - EJACULATION DISORDER [None]
